FAERS Safety Report 4400868-9 (Version None)
Quarter: 2004Q3

REPORT INFORMATION
  Report Type: 
  Country: None (occurrence: None)
  Receive Date: 20040907
  Receipt Date: 20030714
  Transmission Date: 20050211
  Serious: Yes (Hospitalization)
  Sender: FDA-Public Use
  Company Number: US-BRISTOL-MYERS SQUIBB COMPANY-12324901

PATIENT
  Age: 65 Year
  Sex: Female
  Weight: 75 kg

DRUGS (5)
  1. COUMADIN [Suspect]
     Indication: AORTIC VALVE REPLACEMENT
     Dosage: DOSE: M-W-F: 4 MG; S + S: 2 MG; TU-+ TH 3 MG. PREVIOUS DOSE 2-4MG /D. DOSE AS PER PT/INR.
     Route: 048
     Dates: start: 20030406, end: 20030429
  2. AMIODARONE HCL [Concomitant]
  3. LORTAB [Concomitant]
     Dosage: DOSE 5/500. EVERY 4 TO 6 HOURS AS NEEDED.
  4. LOPRESSOR [Concomitant]
  5. AMBIEN [Concomitant]
     Dosage: DOSE : QHS P.R.N.

REACTIONS (2)
  - DEPRESSION [None]
  - PERICARDIAL HAEMORRHAGE [None]
